FAERS Safety Report 17903325 (Version 6)
Quarter: 2021Q1

REPORT INFORMATION
  Report Type: Report from Study
  Country: None (occurrence: RU)
  Receive Date: 20200616
  Receipt Date: 20210305
  Transmission Date: 20210419
  Serious: Yes (Hospitalization, Other)
  Sender: FDA-Public Use
  Company Number: RU-ABBVIE-20P-251-3437578-00

PATIENT
  Age: 68 Year
  Sex: Female
  Weight: 80 kg

DRUGS (13)
  1. BACTRIM [Concomitant]
     Active Substance: SULFAMETHOXAZOLE\TRIMETHOPRIM
     Route: 048
     Dates: start: 20190924, end: 20200529
  2. LEVOFLOXACIN. [Concomitant]
     Active Substance: LEVOFLOXACIN
     Route: 048
     Dates: start: 20190924, end: 20200529
  3. VENETOCLAX. [Suspect]
     Active Substance: VENETOCLAX
     Dosage: DAYS 1?21, CYCLE 1?8, DAYS 1?35, CYCLE 9 AND BEYOND
     Route: 048
     Dates: start: 20180423, end: 20200528
  4. DEXAMETHASONE. [Suspect]
     Active Substance: DEXAMETHASONE
     Indication: PLASMA CELL MYELOMA
     Dosage: DAYS 1, 2, 4, 5, 8, 9, 11, AND 12 OF 21?DAY CYCLE, CYCLES 1?8
     Route: 048
     Dates: start: 20170227, end: 20200520
  5. BACTRIM [Concomitant]
     Active Substance: SULFAMETHOXAZOLE\TRIMETHOPRIM
     Indication: ANTIBIOTIC PROPHYLAXIS
     Route: 048
     Dates: start: 20190311, end: 20190915
  6. ACICLOVIR [Concomitant]
     Active Substance: ACYCLOVIR
     Indication: ANTIVIRAL PROPHYLAXIS
     Route: 048
     Dates: start: 20170227
  7. VENETOCLAX. [Suspect]
     Active Substance: VENETOCLAX
     Indication: PLASMA CELL MYELOMA
     Dosage: DAYS 1?21, CYCLE 1?8, DAYS 1?35, CYCLE 9 AND BEYOND
     Route: 048
     Dates: start: 20170227, end: 20171022
  8. VENETOCLAX. [Suspect]
     Active Substance: VENETOCLAX
     Dosage: DAYS 1?21, CYCLE 1?8, DAYS 1?35, CYCLE 9 AND BEYOND
     Route: 048
     Dates: start: 20171023, end: 20180422
  9. KETOROLAC [Concomitant]
     Active Substance: KETOROLAC TROMETHAMINE
     Indication: OSTEOARTHRITIS
     Dosage: AS NEEDED, ONCE OR TWICE A DAY
     Route: 048
     Dates: start: 20180910, end: 20190218
  10. KETOROLAC [Concomitant]
     Active Substance: KETOROLAC TROMETHAMINE
     Dosage: AS NEEDED, ONCE OR TWICE A DAY
     Route: 048
     Dates: start: 20190722
  11. LEVOFLOXACIN. [Concomitant]
     Active Substance: LEVOFLOXACIN
     Indication: ANTIBIOTIC PROPHYLAXIS
     Route: 048
     Dates: start: 20190311, end: 20190915
  12. BORTEZOMIB. [Suspect]
     Active Substance: BORTEZOMIB
     Indication: PLASMA CELL MYELOMA
     Dosage: DAYS 1, 3, 8, AND 11 OF 21?DAY CYCLE, CYCLES 1?8
     Route: 058
     Dates: start: 20170227, end: 20170417
  13. BORTEZOMIB. [Suspect]
     Active Substance: BORTEZOMIB
     Dosage: DAYS 1, 3, 8, AND 11 OF 21?DAY CYCLE, CYCLES 1?8
     Route: 058
     Dates: start: 20170420, end: 20200519

REACTIONS (2)
  - COVID-19 [Recovered/Resolved]
  - COVID-19 pneumonia [Recovered/Resolved]

NARRATIVE: CASE EVENT DATE: 20200528
